FAERS Safety Report 9317031 (Version 1)
Quarter: 2013Q2

REPORT INFORMATION
  Report Type: Spontaneous
  Country: US (occurrence: US)
  Receive Date: 20130530
  Receipt Date: 20130530
  Transmission Date: 20140414
  Serious: No
  Sender: FDA-Public Use
  Company Number: US-NOVEN-12US004745

PATIENT
  Age: 5 Year
  Sex: Female
  Weight: 26.76 kg

DRUGS (2)
  1. DAYTRANA [Suspect]
     Indication: ATTENTION DEFICIT/HYPERACTIVITY DISORDER
     Dosage: 10 MG, UNK
     Route: 062
     Dates: start: 20120527
  2. RISPERDAL [Concomitant]
     Indication: AFFECTIVE DISORDER
     Dosage: 0.5 MG, UNK
     Route: 048

REACTIONS (4)
  - Increased appetite [Not Recovered/Not Resolved]
  - Application site irritation [Recovered/Resolved]
  - Rash [Not Recovered/Not Resolved]
  - Off label use [Not Recovered/Not Resolved]
